FAERS Safety Report 5943761-2 (Version None)
Quarter: 2008Q4

REPORT INFORMATION
  Report Type: 
  Country: None (occurrence: None)
  Receive Date: 20081106
  Receipt Date: 20081029
  Transmission Date: 20090506
  Serious: Yes (Other)
  Sender: FDA-Public Use
  Company Number: SE-PFIZER INC-2008080907

PATIENT
  Age: 40 Year
  Sex: Female

DRUGS (4)
  1. SYNAREL [Suspect]
     Indication: IN VITRO FERTILISATION
     Route: 045
     Dates: start: 20080821, end: 20080911
  2. SYNAREL [Suspect]
     Route: 045
     Dates: start: 20080912, end: 20080918
  3. SYNAREL [Suspect]
     Route: 045
     Dates: start: 20080919
  4. SYNAREL [Suspect]
     Route: 045

REACTIONS (1)
  - BLISTER [None]
